FAERS Safety Report 5318091-2 (Version None)
Quarter: 2007Q1

REPORT INFORMATION
  Report Type: 
  Country: None (occurrence: None)
  Receive Date: 20070207
  Receipt Date: 20061206
  Transmission Date: 20070707
  Serious: No
  Sender: FDA-Public Use
  Company Number: SPV1-2006-02047

PATIENT
  Age: 40 Year
  Sex: Male
  Weight: 62.5 kg

DRUGS (6)
  1. FOSRENOL [Suspect]
     Indication: HYPERPHOSPHATAEMIA
     Dates: start: 20060101
  2. DAILY-VITE (MINERALS NOS, VITAMINS NOS) [Concomitant]
  3. PREDNISONE TAB [Concomitant]
  4. COMBIVENT SM (IPRATROPIUM BROMIDE, SALBUTAMOL SULFATE) [Concomitant]
  5. ADVAIR DISKUS 100/50 [Concomitant]
  6. XOPENEX [Concomitant]

REACTIONS (2)
  - OCULAR HYPERAEMIA [None]
  - PHARMACEUTICAL PRODUCT COMPLAINT [None]
